FAERS Safety Report 4684468-1 (Version None)
Quarter: 2005Q2

REPORT INFORMATION
  Report Type: 
  Country: None (occurrence: None)
  Receive Date: 20050606
  Receipt Date: 20050524
  Transmission Date: 20051028
  Serious: Yes (Other)
  Sender: FDA-Public Use
  Company Number: 2005078566

PATIENT
  Age: 4 Year
  Sex: Female
  Weight: 19.9583 kg

DRUGS (2)
  1. CHILDREN'S PEDIACARE MULTI-SYMPTOM COLD (PSEUDOEPHEDRINE, DEXTROMETHOR [Suspect]
     Indication: NASOPHARYNGITIS
     Dosage: 1 TABLET ONCE, ORAL
     Route: 048
     Dates: start: 20050524, end: 20050524
  2. ALL OTHER THERAPEUTIC PRODUCTS (ALL OTHER THERAPEUTIC PRODUCTS) [Concomitant]

REACTIONS (1)
  - HALLUCINATION, VISUAL [None]
